FAERS Safety Report 16998478 (Version 1)
Quarter: 2019Q4

REPORT INFORMATION
  Report Type: Spontaneous
  Country: US (occurrence: US)
  Receive Date: 20191106
  Receipt Date: 20191106
  Transmission Date: 20200122
  Serious: No
  Sender: FDA-Public Use
  Company Number: US-TEVA-2019-US-1131597

PATIENT
  Sex: Male

DRUGS (1)
  1. MUPIROCIN. [Suspect]
     Active Substance: MUPIROCIN
     Dosage: ONE TIME LAST NIGHT
     Route: 065
     Dates: start: 20191028

REACTIONS (2)
  - Frequent bowel movements [Unknown]
  - Tremor [Unknown]

NARRATIVE: CASE EVENT DATE: 20191028
